FAERS Safety Report 18509960 (Version 1)
Quarter: 2020Q4

REPORT INFORMATION
  Report Type: Spontaneous
  Country: US (occurrence: US)
  Receive Date: 20201116
  Receipt Date: 20201116
  Transmission Date: 20210114
  Serious: No
  Sender: FDA-Public Use
  Company Number: None

PATIENT
  Age: 59 Year
  Sex: Male

DRUGS (1)
  1. TETRABENAZINE TAB 25MG [Suspect]
     Active Substance: TETRABENAZINE
     Route: 048
     Dates: start: 202007, end: 202008

REACTIONS (5)
  - Suicidal ideation [None]
  - Depression [None]
  - Muscle fatigue [None]
  - Sexual dysfunction [None]
  - Confusional state [None]

NARRATIVE: CASE EVENT DATE: 20200701
